FAERS Safety Report 4572982-9 (Version None)
Quarter: 2005Q1

REPORT INFORMATION
  Report Type: 
  Country: None (occurrence: None)
  Receive Date: 20050203
  Receipt Date: 20050121
  Transmission Date: 20050727
  Serious: Yes (Life-Threatening)
  Sender: FDA-Public Use
  Company Number: 211948

PATIENT
  Age: 66 Year
  Sex: Male
  Weight: 82 kg

DRUGS (6)
  1. MABTHERA (RITUXIMAB) CONC FOR SOLUTION FOR INFUSION [Suspect]
     Indication: DIFFUSE LARGE B-CELL LYMPHOMA
     Dosage: 70 MG, UNK, INTRAVENOUS
     Route: 042
     Dates: start: 20030524, end: 20031022
  2. CYCLOPHOSPHAMIDE [Suspect]
     Indication: DIFFUSE LARGE B-CELL LYMPHOMA
     Dosage: 1500 MG, UNK, INTRAVENOUS
     Route: 042
     Dates: start: 20030524, end: 20031022
  3. ADRIABLASTINE (DOXORUBICIN, DOXORUBICIN HYDROCHLORIDE) [Suspect]
     Indication: DIFFUSE LARGE B-CELL LYMPHOMA
     Dosage: 80 MG, UNK, INTRAVENOUS
     Route: 042
     Dates: start: 20030524, end: 20031022
  4. VINCRISTINE [Suspect]
     Indication: DIFFUSE LARGE B-CELL LYMPHOMA
     Dosage: 2 MG, UNK, INTRAVENOUS
     Route: 042
     Dates: start: 20030524, end: 20030911
  5. ETOPOSIDE [Suspect]
     Indication: DIFFUSE LARGE B-CELL LYMPHOMA
     Dosage: 300 MG, UNK, INTRAVENOUS
     Route: 042
     Dates: start: 20031001, end: 20031022
  6. PREDNISONE TAB [Suspect]
     Dosage: 1.5MG/KG,QD,ORAL
     Route: 048

REACTIONS (4)
  - HAEMATURIA [None]
  - METASTASES TO BONE [None]
  - POLLAKIURIA [None]
  - PROSTATE CANCER [None]
